FAERS Safety Report 7132948-1 (Version None)
Quarter: 2010Q4

REPORT INFORMATION
  Report Type: 
  Country: None (occurrence: None)
  Receive Date: 20101202
  Receipt Date: 20101118
  Transmission Date: 20110411
  Serious: Yes (Other)
  Sender: FDA-Public Use
  Company Number: CHPA2010US17497

PATIENT
  Age: 70 Year
  Sex: Male
  Weight: 104.31 kg

DRUGS (1)
  1. PREVACID 24 HR [Suspect]
     Indication: BARRETT'S OESOPHAGUS
     Dosage: 15 MG, QD
     Route: 048
     Dates: start: 20090101, end: 20101001

REACTIONS (20)
  - ANXIETY [None]
  - ARTHRITIS [None]
  - BLADDER SPASM [None]
  - CHILLS [None]
  - DECREASED APPETITE [None]
  - DRY EYE [None]
  - DYSGEUSIA [None]
  - DYSPHAGIA [None]
  - GASTRITIS [None]
  - HYPERTENSION [None]
  - INFLAMMATION [None]
  - INTENTIONAL DRUG MISUSE [None]
  - MICTURITION URGENCY [None]
  - MUSCLE RIGIDITY [None]
  - MUSCLE SPASMS [None]
  - NECK PAIN [None]
  - NERVOUSNESS [None]
  - OFF LABEL USE [None]
  - PARAESTHESIA [None]
  - SLEEP DISORDER [None]
